FAERS Safety Report 4511335-6 (Version None)
Quarter: 2004Q4

REPORT INFORMATION
  Report Type: 
  Country: None (occurrence: None)
  Receive Date: 20041122
  Receipt Date: 20041114
  Transmission Date: 20050328
  Serious: Yes (Hospitalization, Disabling)
  Sender: FDA-Public Use
  Company Number: 2003-09-0125

PATIENT
  Age: 79 Year
  Sex: Female
  Weight: 34 kg

DRUGS (10)
  1. GENTAMICIN [Suspect]
     Indication: INFLAMMATION
     Dosage: QH/DAY OPHTHALMIC
     Route: 047
     Dates: start: 20020808, end: 20020902
  2. ATROPINE [Suspect]
     Indication: INFLAMMATION
     Dosage: 2 DROPS QD OPHTHALMIC
     Route: 047
     Dates: start: 20020808, end: 20020902
  3. BETAMETHASONE SODIUM PHOSPHATE [Suspect]
     Indication: ANTIINFLAMMATORY THERAPY
     Dosage: 4-3 DROPS QD OPHTHALMIC
     Route: 047
     Dates: start: 20020820, end: 20020902
  4. BETAMETHASONE SODIUM PHOSPHATE [Suspect]
     Indication: ANTIINFLAMMATORY THERAPY
     Dosage: 4-3 DROPS QD OPHTHALMIC
     Route: 047
     Dates: start: 20020820, end: 20021004
  5. BETAMETHASONE SODIUM PHOSPHATE [Suspect]
     Indication: ANTIINFLAMMATORY THERAPY
     Dosage: 4-3 DROPS QD OPHTHALMIC
     Route: 047
     Dates: start: 20020908, end: 20021004
  6. FLUOROMETHOLONE [Concomitant]
  7. DICLOFENAC SODIUM [Concomitant]
  8. TRUSOPT [Concomitant]
  9. OFLOXACIN [Concomitant]
  10. CRAVIT [Concomitant]

REACTIONS (3)
  - CORNEAL DEPOSITS [None]
  - CORNEAL DISORDER [None]
  - EYE INFLAMMATION [None]
